FAERS Safety Report 11498600 (Version 6)
Quarter: 2016Q1

REPORT INFORMATION
  Report Type: Report from Study
  Country: GB (occurrence: GB)
  Receive Date: 20150911
  Receipt Date: 20160128
  Transmission Date: 20160525
  Serious: Yes (Other)
  Sender: FDA-Public Use
  Company Number: GB-AMGEN-GBRCT2015093718

PATIENT
  Age: 64 Year
  Sex: Female
  Weight: 67.8 kg

DRUGS (5)
  1. VITAMIN D                          /00107901/ [Concomitant]
     Active Substance: ERGOCALCIFEROL
     Dosage: 400 IU, UNK
     Route: 048
     Dates: start: 20130819
  2. AMG 785 [Suspect]
     Active Substance: ROMOSOZUMAB
     Indication: OSTEOPOROSIS POSTMENOPAUSAL
     Dosage: UNK
     Route: 058
     Dates: start: 20130909, end: 20140811
  3. DENOSUMAB [Suspect]
     Active Substance: DENOSUMAB
     Indication: OSTEOPOROSIS POSTMENOPAUSAL
     Dosage: 1 ML, UNK
     Route: 058
     Dates: start: 20140911
  4. EVENING PRIMROSE OIL [Concomitant]
     Active Substance: EVENING PRIMROSE OIL
     Dosage: 1 UNK, UNK
     Route: 048
     Dates: start: 2007
  5. CALCIUM [Concomitant]
     Active Substance: CALCIUM
     Dosage: 600 MG, UNK
     Route: 048
     Dates: start: 20130819

REACTIONS (1)
  - Toothache [Recovered/Resolved]

NARRATIVE: CASE EVENT DATE: 20150804
